FAERS Safety Report 7240220-4 (Version None)
Quarter: 2011Q1

REPORT INFORMATION
  Report Type: 
  Country: None (occurrence: None)
  Receive Date: 20110124
  Receipt Date: 20110117
  Transmission Date: 20110831
  Serious: Yes (Other)
  Sender: FDA-Public Use
  Company Number: US-JNJFOC-20110104414

PATIENT
  Sex: Female
  Weight: 81.65 kg

DRUGS (6)
  1. LIALDA [Concomitant]
     Indication: COLITIS
     Route: 048
  2. PREDNISONE [Concomitant]
     Indication: COLITIS
     Route: 048
  3. SIMVASTATIN [Concomitant]
     Indication: BLOOD CHOLESTEROL ABNORMAL
     Route: 048
  4. FUROSEMIDE [Concomitant]
     Indication: OEDEMA PERIPHERAL
     Route: 048
  5. REMICADE [Suspect]
     Indication: COLITIS
     Route: 042
  6. NEXIUM [Concomitant]
     Indication: ABDOMINAL DISCOMFORT
     Route: 048

REACTIONS (13)
  - RASH PRURITIC [None]
  - SWELLING FACE [None]
  - UPPER RESPIRATORY TRACT INFECTION [None]
  - HYPOAESTHESIA [None]
  - RASH [None]
  - MICTURITION URGENCY [None]
  - ERYTHEMA [None]
  - HYPERHIDROSIS [None]
  - FATIGUE [None]
  - FUNGAL SKIN INFECTION [None]
  - VISION BLURRED [None]
  - DIARRHOEA [None]
  - DRUG INEFFECTIVE [None]
